FAERS Safety Report 17030923 (Version 1)
Quarter: 2019Q4

REPORT INFORMATION
  Report Type: Spontaneous
  Country: US (occurrence: US)
  Receive Date: 20191113
  Receipt Date: 20191113
  Transmission Date: 20200122
  Serious: Yes (Other)
  Sender: FDA-Public Use
  Company Number: None

PATIENT
  Age: 63 Year
  Sex: Female
  Weight: 67.5 kg

DRUGS (1)
  1. SOOLANTRA [Suspect]
     Active Substance: IVERMECTIN
     Indication: ROSACEA
     Dosage: ?          QUANTITY:1 45 G;?
     Route: 062
     Dates: start: 20191112, end: 20191113

REACTIONS (4)
  - Hypersensitivity [None]
  - Headache [None]
  - Nausea [None]
  - Product prescribing issue [None]

NARRATIVE: CASE EVENT DATE: 20191112
